FAERS Safety Report 4909995-0 (Version None)
Quarter: 2006Q1

REPORT INFORMATION
  Report Type: 
  Country: None (occurrence: None)
  Receive Date: 20060208
  Receipt Date: 20060124
  Transmission Date: 20060701
  Serious: Yes (Hospitalization)
  Sender: FDA-Public Use
  Company Number: FR-2006-001532

PATIENT
  Sex: Female

DRUGS (1)
  1. BETASERON [Suspect]
     Indication: MULTIPLE SCLEROSIS
     Dosage: 250 UG/DAY, EVERY 2D, SUBCUTANEOUS
     Route: 058
     Dates: end: 20060101

REACTIONS (5)
  - BLOOD THYROID STIMULATING HORMONE INCREASED [None]
  - ENCEPHALOPATHY [None]
  - GENERAL PHYSICAL HEALTH DETERIORATION [None]
  - LOCKED-IN SYNDROME [None]
  - THYROID DISORDER [None]
